FAERS Safety Report 8990041 (Version 1)
Quarter: 2012Q4

REPORT INFORMATION
  Report Type: 
  Country: CH (occurrence: CH)
  Receive Date: 20121228
  Receipt Date: 20121228
  Transmission Date: 20130627
  Serious: Yes (Life-Threatening, Hospitalization)
  Sender: FDA-Public Use
  Company Number: PHHY2012CH117848

PATIENT
  Sex: Female
  Weight: 48 kg

DRUGS (3)
  1. AMIODARONE [Suspect]
     Indication: ARRHYTHMIA
     Dosage: 100 mg, QD
     Route: 048
  2. DIGOXIN [Interacting]
     Dosage: 0.25 mg, QD
     Route: 048
  3. METOPROLOL [Interacting]
     Dosage: 50 mg, QD
     Route: 048

REACTIONS (6)
  - Toxicity to various agents [Unknown]
  - Electrocardiogram ST segment depression [Recovering/Resolving]
  - Angina pectoris [Recovering/Resolving]
  - Atrioventricular block first degree [Recovering/Resolving]
  - Bradycardia [Recovered/Resolved]
  - Drug interaction [Unknown]
